FAERS Safety Report 5057085-1 (Version None)
Quarter: 2006Q2

REPORT INFORMATION
  Report Type: 
  Country: None (occurrence: None)
  Receive Date: 20060622
  Receipt Date: 20051020
  Transmission Date: 20061013
  Serious: Yes (Other)
  Sender: FDA-Public Use
  Company Number: NSADSS2001017287

PATIENT
  Age: 51 Year
  Sex: Female
  Weight: 49.8957 kg

DRUGS (1)
  1. DURAGESIC-100 [Suspect]
     Indication: PAIN
     Dosage: SEE IMAGE
     Route: 062
     Dates: start: 20010301, end: 20010501

REACTIONS (4)
  - ANOREXIA [None]
  - DRUG WITHDRAWAL SYNDROME [None]
  - HYPOVENTILATION [None]
  - WEIGHT DECREASED [None]
